FAERS Safety Report 18784639 (Version 1)
Quarter: 2021Q1

REPORT INFORMATION
  Report Type: Spontaneous
  Country: US (occurrence: US)
  Receive Date: 20210126
  Receipt Date: 20210126
  Transmission Date: 20210419
  Serious: Yes (Other)
  Sender: FDA-Public Use
  Company Number: US-PFIZER INC-2021049371

PATIENT
  Age: 83 Year
  Sex: Male

DRUGS (1)
  1. VIAGRA [Suspect]
     Active Substance: SILDENAFIL CITRATE
     Indication: ERECTILE DYSFUNCTION
     Dosage: UNK, CYCLIC ONCE EVERY 4 HOURS FOR THE LAST 48 HOURS

REACTIONS (5)
  - Intentional overdose [Unknown]
  - Pain [Unknown]
  - Intentional product misuse [Unknown]
  - Penis disorder [Unknown]
  - Dizziness [Unknown]
